FAERS Safety Report 11241627 (Version 4)
Quarter: 2015Q4

REPORT INFORMATION
  Report Type: Report from Study
  Country: US (occurrence: US)
  Receive Date: 20150706
  Receipt Date: 20151120
  Transmission Date: 20160304
  Serious: Yes (Hospitalization)
  Sender: FDA-Public Use
  Company Number: US-SA-2015SA092910

PATIENT
  Sex: Female

DRUGS (14)
  1. TRASTUZUMAB [Suspect]
     Active Substance: TRASTUZUMAB
     Indication: INVASIVE BREAST CARCINOMA
     Route: 042
     Dates: start: 20150317, end: 20150317
  2. DOCETAXEL. [Suspect]
     Active Substance: DOCETAXEL
     Indication: INVASIVE BREAST CARCINOMA
     Dosage: DURATION -OVER 60 MIN
     Route: 042
     Dates: start: 20150317, end: 20150317
  3. CARBOPLATIN. [Suspect]
     Active Substance: CARBOPLATIN
     Indication: INVASIVE BREAST CARCINOMA
     Dosage: TOTAL DOSE:667.8 MG
     Route: 042
     Dates: start: 20150519, end: 20150519
  4. TRASTUZUMAB [Suspect]
     Active Substance: TRASTUZUMAB
     Indication: INVASIVE BREAST CARCINOMA
     Dosage: DURATION: 30-60 MIN, FREQUENCY :ONCE IN 3 WEEKS
     Route: 042
     Dates: start: 20150317, end: 20150317
  5. TRASTUZUMAB [Suspect]
     Active Substance: TRASTUZUMAB
     Indication: INVASIVE BREAST CARCINOMA
     Dosage: TOTAL DOSE-462 MG
     Route: 042
     Dates: start: 20150630, end: 20150630
  6. PERTUZUMAB [Suspect]
     Active Substance: PERTUZUMAB
     Indication: INVASIVE BREAST CARCINOMA
     Dosage: TOTAL DOSE-420MG
     Route: 042
     Dates: start: 20150630, end: 20150630
  7. DOCETAXEL. [Suspect]
     Active Substance: DOCETAXEL
     Indication: INVASIVE BREAST CARCINOMA
     Dosage: TOATL DOSE:136 MG
     Route: 042
     Dates: start: 20150519, end: 20150519
  8. DOCETAXEL. [Suspect]
     Active Substance: DOCETAXEL
     Indication: INVASIVE BREAST CARCINOMA
     Dosage: TOTAL DOSE-134MG
     Route: 042
     Dates: start: 20150630, end: 20150630
  9. TRASTUZUMAB [Suspect]
     Active Substance: TRASTUZUMAB
     Indication: INVASIVE BREAST CARCINOMA
     Dosage: TOTAL DOSE:468.3 MG
     Route: 042
     Dates: start: 20150519, end: 20150519
  10. CARBOPLATIN. [Suspect]
     Active Substance: CARBOPLATIN
     Indication: INVASIVE BREAST CARCINOMA
     Dosage: DOSE:6 MG/ML/MIN ?DURATION: OVER 30-60 MIN
     Route: 042
     Dates: start: 20150317, end: 20150317
  11. PERTUZUMAB [Suspect]
     Active Substance: PERTUZUMAB
     Indication: INVASIVE BREAST CARCINOMA
     Route: 042
     Dates: start: 20150317, end: 20150317
  12. PERTUZUMAB [Suspect]
     Active Substance: PERTUZUMAB
     Indication: INVASIVE BREAST CARCINOMA
     Route: 042
     Dates: start: 20150317, end: 20150317
  13. CARBOPLATIN. [Suspect]
     Active Substance: CARBOPLATIN
     Indication: INVASIVE BREAST CARCINOMA
     Dosage: TOTAL DOSE-648 MG
     Route: 042
     Dates: start: 20150630, end: 20150630
  14. PERTUZUMAB [Suspect]
     Active Substance: PERTUZUMAB
     Indication: INVASIVE BREAST CARCINOMA
     Dosage: TOTAL DOSE: 420 MG
     Route: 042
     Dates: start: 20150519, end: 20150519

REACTIONS (7)
  - Hypokalaemia [Recovered/Resolved]
  - Nausea [Recovered/Resolved]
  - Hyponatraemia [Recovering/Resolving]
  - Hyponatraemia [Recovered/Resolved]
  - Hypokalaemia [Recovering/Resolving]
  - Vaginal infection [Unknown]
  - Vomiting [Recovered/Resolved]

NARRATIVE: CASE EVENT DATE: 20150525
